FAERS Safety Report 5007836-7 (Version None)
Quarter: 2006Q2

REPORT INFORMATION
  Report Type: 
  Country: None (occurrence: None)
  Receive Date: 20060522
  Receipt Date: 20060511
  Transmission Date: 20061013
  Serious: Yes (Hospitalization)
  Sender: FDA-Public Use
  Company Number: CH-JNJFOC-20060504102

PATIENT
  Age: 77 Year
  Sex: Male

DRUGS (5)
  1. TRAMADOL HCL [Suspect]
     Indication: ARTHRALGIA
     Route: 048
  2. MEFENAMIC ACID [Suspect]
     Indication: ARTHRALGIA
     Route: 048
  3. STALEVO 100 [Suspect]
     Indication: PARKINSONISM
     Route: 048
  4. AMANTADINE HCL [Suspect]
     Indication: PARKINSONISM
     Route: 048
  5. DETRUSITOL [Concomitant]
     Route: 048

REACTIONS (3)
  - CONFUSIONAL STATE [None]
  - DYSKINESIA [None]
  - HALLUCINATION, VISUAL [None]
